FAERS Safety Report 7277991-7 (Version None)
Quarter: 2011Q1

REPORT INFORMATION
  Report Type: 
  Country: None (occurrence: None)
  Receive Date: 20110207
  Receipt Date: 20110202
  Transmission Date: 20110831
  Serious: No
  Sender: FDA-Public Use
  Company Number: US-ROCHE-757458

PATIENT
  Sex: Male
  Weight: 15 kg

DRUGS (2)
  1. TAMIFLU [Suspect]
     Indication: INFLUENZA
     Dosage: 12 MG/ML SUSPENSION AT 2.5 TEASPOONFULS TWICE DAILY
     Route: 048
     Dates: start: 20110131, end: 20110201
  2. FLOVENT [Concomitant]
     Dosage: 02 PUFFS EVERY 4 HOURS AS NEEDED

REACTIONS (3)
  - VOMITING [None]
  - PYREXIA [None]
  - DRUG ADMINISTRATION ERROR [None]
